FAERS Safety Report 7023492-0 (Version None)
Quarter: 2010Q3

REPORT INFORMATION
  Report Type: 
  Country: None (occurrence: None)
  Receive Date: 20100929
  Receipt Date: 20100929
  Transmission Date: 20110219
  Serious: Yes (Death)
  Sender: FDA-Public Use
  Company Number: None

PATIENT
  Age: 12 Year
  Sex: Female
  Weight: 7.3 kg

DRUGS (8)
  1. LONAFARNIB (SCH66336) [Suspect]
     Indication: PROGERIA
     Dosage: 65 MG,TWICE DAILY, ORALLY
     Route: 048
     Dates: start: 20091127, end: 20100925
  2. PRAVASTATIN [Suspect]
     Indication: PROGERIA
     Dosage: 5 MG DAILY, ORALLY
     Route: 048
     Dates: start: 20091124, end: 20100925
  3. ZOLEDRONIC ACID [Suspect]
     Indication: PROGERIA
     Dosage: 0.091MG PER 25ML NACL IV
     Route: 042
     Dates: start: 20100614
  4. ASPIRIN [Concomitant]
  5. PROPRANOLOL [Concomitant]
  6. CA [Concomitant]
  7. VITAMIN D [Concomitant]
  8. LOPERAMIDE [Concomitant]

REACTIONS (2)
  - CARDIAC DISORDER [None]
  - PNEUMONIA [None]
